FAERS Safety Report 5917625-4 (Version None)
Quarter: 2008Q4

REPORT INFORMATION
  Report Type: 
  Country: None (occurrence: None)
  Receive Date: 20081014
  Receipt Date: 20081007
  Transmission Date: 20090506
  Serious: Yes (Hospitalization)
  Sender: FDA-Public Use
  Company Number: GB-MERCK-0808GBR00082

PATIENT
  Age: 65 Year
  Sex: Female

DRUGS (10)
  1. HYZAAR [Suspect]
     Indication: HYPERTENSION
     Route: 048
     Dates: end: 20080722
  2. AMLODIPINE BESYLATE [Concomitant]
     Indication: HYPERTENSION
     Route: 065
     Dates: start: 20080709
  3. ARIPIPRAZOLE [Concomitant]
     Route: 065
  4. ASPIRIN [Concomitant]
     Route: 065
  5. ACETAMINOPHEN AND CODEINE PHOSPHATE [Concomitant]
     Indication: PAIN
     Route: 065
  6. DOXAZOSIN MESYLATE [Concomitant]
     Indication: HYPERTENSION
     Route: 065
     Dates: start: 20080709
  7. FERROUS SULFATE [Concomitant]
     Route: 065
  8. IBUPROFEN [Concomitant]
     Route: 065
  9. LANSOPRAZOLE [Concomitant]
     Route: 065
  10. SIMVASTATIN [Concomitant]
     Route: 065

REACTIONS (5)
  - ANAPHYLACTOID REACTION [None]
  - ANGIOEDEMA [None]
  - DYSPNOEA [None]
  - RASH GENERALISED [None]
  - WHEEZING [None]
